FAERS Safety Report 6974438-2 (Version None)
Quarter: 2010Q3

REPORT INFORMATION
  Report Type: 
  Country: None (occurrence: None)
  Receive Date: 20100909
  Receipt Date: 20080310
  Transmission Date: 20110219
  Serious: No
  Sender: FDA-Public Use
  Company Number: US-WYE-H02828608

PATIENT
  Sex: Male
  Weight: 72.64 kg

DRUGS (2)
  1. PROTONIX [Suspect]
     Indication: GASTROOESOPHAGEAL REFLUX DISEASE
     Route: 048
     Dates: start: 20080216, end: 20080225
  2. PROTONIX [Suspect]
     Dosage: ^TOOK 2 DOSES TODAY BY MISTAKE^
     Route: 048
     Dates: start: 20080226, end: 20080226

REACTIONS (2)
  - DRY MOUTH [None]
  - INCORRECT DOSE ADMINISTERED [None]
